FAERS Safety Report 5568745-8 (Version None)
Quarter: 2007Q4

REPORT INFORMATION
  Report Type: 
  Country: None (occurrence: None)
  Receive Date: 20071220
  Receipt Date: 20070108
  Transmission Date: 20080405
  Serious: No
  Sender: FDA-Public Use
  Company Number: A0631445A

PATIENT
  Age: 86 Year
  Sex: Male
  Weight: 74.5 kg

DRUGS (2)
  1. AVODART [Suspect]
     Indication: BENIGN PROSTATIC HYPERPLASIA
     Dosage: .5MCG PER DAY
     Route: 048
     Dates: start: 20061113, end: 20061101
  2. LOMAX [Concomitant]

REACTIONS (2)
  - PAIN IN EXTREMITY [None]
  - RENAL PAIN [None]
